FAERS Safety Report 8086091-8 (Version None)
Quarter: 2012Q1

REPORT INFORMATION
  Report Type: 
  Country: None (occurrence: None)
  Receive Date: 20120128
  Receipt Date: 20110414
  Transmission Date: 20120608
  Serious: No
  Sender: FDA-Public Use
  Company Number: US-ABBOTT-11P-163-0719036-00

PATIENT
  Sex: Male
  Weight: 65.83 kg

DRUGS (4)
  1. VITAMIN E [Concomitant]
     Indication: VITAMIN SUPPLEMENTATION
  2. HUMIRA [Suspect]
     Indication: PSORIASIS
     Dates: start: 20100101
  3. UNNAMED TOPICAL CREAM [Concomitant]
     Indication: PSORIASIS
     Route: 061
     Dates: start: 20110201
  4. ASCORBIC ACID [Concomitant]
     Indication: VITAMIN SUPPLEMENTATION

REACTIONS (11)
  - SENSATION OF PRESSURE [None]
  - ECZEMA [None]
  - NASAL CONGESTION [None]
  - PAIN [None]
  - DYSPHONIA [None]
  - PILOERECTION [None]
  - NASOPHARYNGITIS [None]
  - PHARYNGEAL OEDEMA [None]
  - RASH [None]
  - LYMPHADENOPATHY [None]
  - BEDRIDDEN [None]
